FAERS Safety Report 6361148-8 (Version None)
Quarter: 2009Q3

REPORT INFORMATION
  Report Type: 
  Country: None (occurrence: None)
  Receive Date: 20090916
  Receipt Date: 20090916
  Transmission Date: 20100115
  Serious: No
  Sender: FDA-Public Use
  Company Number: None

PATIENT
  Sex: Female
  Weight: 86.1834 kg

DRUGS (2)
  1. LEVOTHYROXINE SODIUM [Suspect]
     Indication: THYROIDECTOMY
     Dosage: 125 MCG 1X DAILY ORAL
     Route: 048
     Dates: start: 20090615
  2. LEVOTHYROXINE SODIUM [Suspect]
     Dosage: 100MCG 1 X DAILY ORAL
     Route: 048

REACTIONS (1)
  - ALOPECIA [None]
